FAERS Safety Report 8314413-9 (Version None)
Quarter: 2012Q2

REPORT INFORMATION
  Report Type: 
  Country: None (occurrence: None)
  Receive Date: 20120426
  Receipt Date: 20120417
  Transmission Date: 20120825
  Serious: Yes (Other)
  Sender: FDA-Public Use
  Company Number: US-ASTRAZENECA-2011SE08691

PATIENT
  Age: 52 Year
  Sex: Female
  Weight: 72.6 kg

DRUGS (5)
  1. ESTROGEN [Concomitant]
  2. OXYCODONE HCL [Concomitant]
  3. SEROQUEL XR [Suspect]
     Indication: BIPOLAR I DISORDER
     Route: 048
  4. KLONOPIN [Concomitant]
  5. CYMBALTA [Concomitant]

REACTIONS (4)
  - UPPER LIMB FRACTURE [None]
  - HYPOACUSIS [None]
  - INTENTIONAL DRUG MISUSE [None]
  - SUICIDAL IDEATION [None]
